FAERS Safety Report 21285153 (Version 2)
Quarter: 2022Q4

REPORT INFORMATION
  Report Type: Spontaneous
  Country: DE (occurrence: DE)
  Receive Date: 20220902
  Receipt Date: 20221006
  Transmission Date: 20230113
  Serious: Yes (Other)
  Sender: FDA-Public Use
  Company Number: None

PATIENT
  Age: 82 Year
  Sex: Female
  Weight: 72 kg

DRUGS (6)
  1. PREDNISOLONE [Interacting]
     Active Substance: PREDNISOLONE
     Indication: Rheumatic disorder
     Dosage: THERAPY END DATE: NASK
     Dates: start: 202207
  2. ETANERCEPT [Interacting]
     Active Substance: ETANERCEPT
     Indication: Rheumatic disorder
     Dosage: DURATION: 9 WEEKS, FORM STRENGTH : 50 MG, THERAPY START DATE: NASK
     Dates: end: 202206
  3. AMITRIPTYLINE [Concomitant]
     Active Substance: AMITRIPTYLINE
     Indication: Depression
     Dosage: 25 MILLIGRAM DAILY; 1-0-0, FORM STRENGTH : 25 MG
  4. AMITRIPTYLINE [Concomitant]
     Active Substance: AMITRIPTYLINE
     Indication: Pain
  5. RAMIPRIL [Concomitant]
     Active Substance: RAMIPRIL
     Indication: Hypertension
     Dosage: 5 MILLIGRAM DAILY; 1/2-0-1/2, PERMANENT MEDICATION, FORM STRENGTH : 5 MG
  6. LERCANIDIPINE [Concomitant]
     Active Substance: LERCANIDIPINE
     Indication: Hypertension
     Dosage: 10 MILLIGRAM DAILY; 1-0-0, PERMANENT MEDICATION, FORM STRENGTH : 10 MG

REACTIONS (18)
  - Glucocorticoid deficiency [Unknown]
  - Skin warm [Unknown]
  - Chills [Unknown]
  - Eye irritation [Unknown]
  - Loss of personal independence in daily activities [Unknown]
  - Arthralgia [Unknown]
  - Drug interaction [Unknown]
  - Inappropriate schedule of product discontinuation [Unknown]
  - Arthralgia [Unknown]
  - Asthenia [Unknown]
  - Muscular weakness [Unknown]
  - Visual impairment [Unknown]
  - Joint swelling [Unknown]
  - Pruritus [Unknown]
  - Asthenia [Unknown]
  - Joint swelling [Unknown]
  - Erythema [Unknown]
  - Malaise [Recovered/Resolved]

NARRATIVE: CASE EVENT DATE: 20220101
